FAERS Safety Report 5280147-0 (Version None)
Quarter: 2007Q1

REPORT INFORMATION
  Report Type: 
  Country: None (occurrence: None)
  Receive Date: 20070329
  Receipt Date: 20070319
  Transmission Date: 20070707
  Serious: Yes (Other)
  Sender: FDA-Public Use
  Company Number: 2007UW05344

PATIENT
  Age: 12 Year
  Sex: Male
  Weight: 72.6 kg

DRUGS (5)
  1. SEROQUEL [Suspect]
     Indication: ASPERGER'S DISORDER
     Route: 048
  2. SEROQUEL [Suspect]
     Indication: ATTENTION DEFICIT/HYPERACTIVITY DISORDER
     Route: 048
  3. LEXAPRO [Concomitant]
  4. ABILIFY [Concomitant]
  5. STRATTERA [Concomitant]

REACTIONS (6)
  - ABDOMINAL PAIN UPPER [None]
  - CONSTIPATION [None]
  - DRY MOUTH [None]
  - MUSCLE SPASMS [None]
  - SELF-INJURIOUS IDEATION [None]
  - SOMNOLENCE [None]
